FAERS Safety Report 7010409-8 (Version None)
Quarter: 2010Q3

REPORT INFORMATION
  Report Type: 
  Country: None (occurrence: None)
  Receive Date: 20100923
  Receipt Date: 20100630
  Transmission Date: 20110219
  Serious: No
  Sender: FDA-Public Use
  Company Number: US-BAUSCH-2010BL003609

PATIENT

DRUGS (4)
  1. BESIVANCE [Suspect]
     Indication: ANTIBIOTIC PROPHYLAXIS
     Dates: start: 20100621
  2. BESIVANCE [Suspect]
     Indication: OFF LABEL USE
     Dates: start: 20100621
  3. LOTEMAX [Concomitant]
     Indication: PHOTOREFRACTIVE KERATECTOMY
     Dates: start: 20100624
  4. ACUVAIL [Concomitant]
     Indication: PHOTOREFRACTIVE KERATECTOMY
     Dates: start: 20100624, end: 20100625

REACTIONS (3)
  - CHEMICAL EYE INJURY [None]
  - EYE PAIN [None]
  - IMPAIRED HEALING [None]
